FAERS Safety Report 11496805 (Version 1)
Quarter: 2015Q3

REPORT INFORMATION
  Report Type: Spontaneous
  Country: US (occurrence: US)
  Receive Date: 20150911
  Receipt Date: 20150911
  Transmission Date: 20151125
  Serious: Yes (Hospitalization, Other)
  Sender: FDA-Public Use
  Company Number: US-JNJFOC-20150618185

PATIENT
  Sex: Female
  Weight: 99.77 kg

DRUGS (5)
  1. ADEMPAS [Suspect]
     Active Substance: RIOCIGUAT
     Indication: PULMONARY HYPERTENSION
     Route: 048
     Dates: start: 20140210
  2. XARELTO [Suspect]
     Active Substance: RIVAROXABAN
     Indication: PRODUCT USED FOR UNKNOWN INDICATION
     Route: 048
  3. ADEMPAS [Suspect]
     Active Substance: RIOCIGUAT
     Indication: PULMONARY HYPERTENSION
     Route: 048
     Dates: start: 20140203
  4. ADEMPAS [Suspect]
     Active Substance: RIOCIGUAT
     Indication: PULMONARY HYPERTENSION
     Route: 048
  5. ADEMPAS [Suspect]
     Active Substance: RIOCIGUAT
     Indication: PULMONARY HYPERTENSION
     Route: 048
     Dates: start: 20140210

REACTIONS (10)
  - Gastrooesophageal reflux disease [Unknown]
  - Rectal haemorrhage [Recovered/Resolved]
  - Epistaxis [Recovered/Resolved]
  - Asthenia [Unknown]
  - Decreased activity [Unknown]
  - Decreased appetite [Unknown]
  - Nausea [Unknown]
  - Haematochezia [Unknown]
  - Constipation [Unknown]
  - Frequent bowel movements [Unknown]
